FAERS Safety Report 6302419-0 (Version None)
Quarter: 2009Q3

REPORT INFORMATION
  Report Type: 
  Country: None (occurrence: None)
  Receive Date: 20090810
  Receipt Date: 20090730
  Transmission Date: 20100115
  Serious: Yes (Hospitalization)
  Sender: FDA-Public Use
  Company Number: CH-JNJFOC-20090800326

PATIENT
  Age: 69 Year
  Sex: Female

DRUGS (5)
  1. INFLIXIMAB [Suspect]
     Route: 042
  2. INFLIXIMAB [Suspect]
     Indication: INFLAMMATION
     Route: 042
  3. INFLIXIMAB [Suspect]
     Indication: CROHN'S DISEASE
     Route: 042
  4. PREDNISONE [Concomitant]
     Indication: INFLAMMATION
  5. PREDNISONE [Concomitant]
     Indication: CROHN'S DISEASE
     Dosage: FOR 2 WEEKS AND THEN TAPERED

REACTIONS (1)
  - BOVINE TUBERCULOSIS [None]
